FAERS Safety Report 23337797 (Version 2)
Quarter: 2024Q1

REPORT INFORMATION
  Report Type: Spontaneous
  Country: US (occurrence: US)
  Receive Date: 20231226
  Receipt Date: 20240203
  Transmission Date: 20240410
  Serious: No
  Sender: FDA-Public Use
  Company Number: US-Ipsen Biopharmaceuticals, Inc.-2023-28129

PATIENT
  Sex: Female

DRUGS (2)
  1. SOHONOS [Suspect]
     Active Substance: PALOVAROTENE
     Indication: Fibrodysplasia ossificans progressiva
     Route: 048
  2. SOHONOS [Suspect]
     Active Substance: PALOVAROTENE
     Route: 048

REACTIONS (1)
  - Fall [Unknown]
